FAERS Safety Report 26020694 (Version 1)
Quarter: 2025Q4

REPORT INFORMATION
  Report Type: Spontaneous
  Country: US (occurrence: None)
  Receive Date: 20251109
  Receipt Date: 20251109
  Transmission Date: 20260117
  Serious: Yes (Other)
  Sender: FDA-CTU
  Company Number: None

PATIENT
  Age: 52 Year
  Sex: Female
  Weight: 62.1 kg

DRUGS (7)
  1. VIVITROL [Suspect]
     Active Substance: NALTREXONE
     Indication: Alcohol use disorder
     Dosage: 1 INJECTION INTRAMUSCULAR
     Route: 030
     Dates: start: 20251106, end: 20251106
  2. LAMICTAL [Concomitant]
     Active Substance: LAMOTRIGINE
  3. ABILIFY [Concomitant]
     Active Substance: ARIPIPRAZOLE
  4. TRAZODONE [Concomitant]
     Active Substance: TRAZODONE HYDROCHLORIDE
  5. TYLENOL [Concomitant]
     Active Substance: ACETAMINOPHEN
  6. MELATONIN [Concomitant]
     Active Substance: MELATONIN
  7. MAGNESIUM [Concomitant]
     Active Substance: MAGNESIUM

REACTIONS (3)
  - Incorrect route of product administration [None]
  - Injection site pain [None]
  - Product administration error [None]

NARRATIVE: CASE EVENT DATE: 20251106
